FAERS Safety Report 7089898-9 (Version None)
Quarter: 2010Q4

REPORT INFORMATION
  Report Type: 
  Country: None (occurrence: None)
  Receive Date: 20101108
  Receipt Date: 20101102
  Transmission Date: 20110411
  Serious: Yes (Other)
  Sender: FDA-Public Use
  Company Number: US-AMGEN-USASP2010000356

PATIENT

DRUGS (2)
  1. ENBREL [Suspect]
     Indication: PSORIATIC ARTHROPATHY
     Dates: start: 20101001
  2. ENBREL [Suspect]
     Indication: PSORIASIS

REACTIONS (4)
  - ABNORMAL SENSATION IN EYE [None]
  - DIZZINESS [None]
  - INJECTION SITE ERYTHEMA [None]
  - VISION BLURRED [None]
